FAERS Safety Report 10335026 (Version 1)
Quarter: 2014Q3

REPORT INFORMATION
  Report Type: Spontaneous
  Country: US (occurrence: None)
  Receive Date: 20140721
  Receipt Date: 20140721
  Transmission Date: 20150326
  Serious: Yes (Life-Threatening, Hospitalization)
  Sender: FDA-Public Use
  Company Number: 201407-US-000962

PATIENT
  Age: 6 Year
  Sex: Female

DRUGS (3)
  1. MIRALAX [Suspect]
     Active Substance: POLYETHYLENE GLYCOL 3350
     Indication: LAXATIVE SUPPORTIVE CARE
  2. FLEET [Suspect]
     Active Substance: BISACODYL\GLYCERIN\MINERAL OIL\SODIUM PHOSPHATE, DIBASIC\SODIUM PHOSPHATE, MONOBASIC
     Indication: CONSTIPATION
     Dosage: 354 ML, 3 IN 24 HOURS, RECTAL
     Route: 054
  3. PEDIA-LAX [Suspect]
     Active Substance: DOCUSATE SODIUM\GLYCERIN\MAGNESIUM HYDROXIDE
     Indication: LAXATIVE SUPPORTIVE CARE
     Route: 054

REACTIONS (12)
  - Hyperphosphataemia [None]
  - Nystagmus [None]
  - Drug prescribing error [None]
  - Labelled drug-disease interaction medication error [None]
  - Acute phosphate nephropathy [None]
  - Drug ineffective [None]
  - Accidental overdose [None]
  - Mental status changes [None]
  - Hypotonia [None]
  - Tetany [None]
  - Incorrect drug administration duration [None]
  - Off label use [None]
